FAERS Safety Report 12120151 (Version 1)
Quarter: 2016Q1

REPORT INFORMATION
  Report Type: Spontaneous
  Country: US (occurrence: US)
  Receive Date: 20160226
  Receipt Date: 20160226
  Transmission Date: 20160526
  Serious: No
  Sender: FDA-Public Use
  Company Number: US-PFIZER INC-2016119444

PATIENT
  Sex: Female
  Weight: 48 kg

DRUGS (1)
  1. PRISTIQ EXTENDED RELEASE [Suspect]
     Active Substance: DESVENLAFAXINE SUCCINATE
     Indication: PAIN
     Dosage: 50 MG, 1X/DAY
     Dates: start: 20160216, end: 20160220

REACTIONS (6)
  - Product use issue [Unknown]
  - Visual impairment [Recovering/Resolving]
  - Mydriasis [Unknown]
  - Vision blurred [Recovering/Resolving]
  - Photophobia [Not Recovered/Not Resolved]
  - Feeling abnormal [Unknown]

NARRATIVE: CASE EVENT DATE: 20160216
